FAERS Safety Report 7999147-2 (Version None)
Quarter: 2011Q4

REPORT INFORMATION
  Report Type: 
  Country: None (occurrence: None)
  Receive Date: 20111221
  Receipt Date: 20111216
  Transmission Date: 20120403
  Serious: Yes (Death, Hospitalization)
  Sender: FDA-Public Use
  Company Number: FR-CELGENEUS-056-21880-11122108

PATIENT
  Sex: Male
  Weight: 66 kg

DRUGS (5)
  1. REVLIMID [Suspect]
     Indication: T-CELL LYMPHOMA
     Dosage: 25 MILLIGRAM
     Route: 048
     Dates: start: 20111128, end: 20111208
  2. PREDNISOLONE [Concomitant]
     Indication: T-CELL LYMPHOMA
     Route: 065
     Dates: start: 20111128, end: 20111202
  3. CYCLOPHOSPHAMIDE [Concomitant]
     Indication: T-CELL LYMPHOMA
     Route: 065
     Dates: start: 20111128, end: 20111202
  4. VINCRISTINE [Concomitant]
     Indication: T-CELL LYMPHOMA
     Route: 065
     Dates: start: 20111128, end: 20111202
  5. DOXORUBICIN HCL [Concomitant]
     Indication: T-CELL LYMPHOMA
     Route: 065
     Dates: start: 20111128, end: 20111202

REACTIONS (2)
  - SEPTIC SHOCK [None]
  - BONE MARROW FAILURE [None]
